FAERS Safety Report 25683962 (Version 1)
Quarter: 2025Q3

REPORT INFORMATION
  Report Type: Report from Study
  Country: US (occurrence: US)
  Receive Date: 20250815
  Receipt Date: 20250815
  Transmission Date: 20251020
  Serious: Yes (Hospitalization)
  Sender: ALEXION PHARMACEUTICALS
  Company Number: 202505USA029384US

PATIENT
  Sex: Male

DRUGS (1)
  1. ANIFROLUMAB [Suspect]
     Active Substance: ANIFROLUMAB
     Indication: Systemic lupus erythematosus
     Dosage: 300 MILLIGRAM Q4W
     Dates: start: 20250128

REACTIONS (4)
  - Neoplasm [Unknown]
  - Limb injury [Unknown]
  - Back pain [Recovering/Resolving]
  - Drug ineffective [Unknown]
